FAERS Safety Report 24114303 (Version 1)
Quarter: 2024Q3

REPORT INFORMATION
  Report Type: Spontaneous
  Country: RS (occurrence: RS)
  Receive Date: 20240720
  Receipt Date: 20240720
  Transmission Date: 20241017
  Serious: Yes (Other)
  Sender: RANBAXY
  Company Number: RS-SUN PHARMACEUTICAL INDUSTRIES LTD-2024R1-457293

PATIENT
  Age: 74 Year
  Sex: Male

DRUGS (3)
  1. BUPIVACAINE [Suspect]
     Active Substance: BUPIVACAINE
     Indication: Anaesthesia
     Dosage: 8.5 MILLIGRAM (1.7 ML OF 0.5% HEAVY BUPIVACAINE)
  2. DEXAMETHASONE [Suspect]
     Active Substance: DEXAMETHASONE
     Indication: Anaesthesia
     Dosage: 4 MILLIGRAM
  3. FENTANYL [Suspect]
     Active Substance: FENTANYL\FENTANYL CITRATE
     Indication: Anaesthesia
     Dosage: 50 MICROGRAM

REACTIONS (1)
  - Hypotension [Recovered/Resolved]
